FAERS Safety Report 9199208 (Version 2)
Quarter: 2013Q2

REPORT INFORMATION
  Report Type: Spontaneous
  Country: US (occurrence: None)
  Receive Date: 20130325
  Receipt Date: 20130415
  Transmission Date: 20140414
  Serious: No
  Sender: FDA-Public Use
  Company Number: 2013US-004593

PATIENT
  Age: 76 Year
  Sex: Male

DRUGS (13)
  1. OMONTYS [Suspect]
     Indication: NEPHROGENIC ANAEMIA
     Route: 042
     Dates: start: 20130208, end: 20130208
  2. EPOGEN (EPOETIN ALFA) [Concomitant]
  3. ASA (ACETYLSALICYLIC ACID) [Concomitant]
  4. CARVEDILOL (CARVEDILOL) [Concomitant]
  5. NORVASC (AMLODIPINE BESILATE) [Concomitant]
  6. PHOSLO (CALCIUM ACETATE) [Concomitant]
  7. PEPCID (FAMOTIDINE) [Concomitant]
  8. TYLENOL EXTRA STRENGTH (PARACETAMOL) [Concomitant]
  9. EMLA (LIDOCAINE, PRILOCAINE) [Concomitant]
  10. TYLENOL (PARACETAMOL) [Concomitant]
  11. VITAMIN D3 (COLECALCIFEROL) [Concomitant]
  12. NEPHROCAPS (ASCORBIC ACID, BIOTIN, CYANOCOBALAMIN, FOLIC ACD, NICOTINAMIDE, PANTOTHENIC ACID, PYRIDOXINE HYDROCHLORIDE, RIBOFLAVIN, THIAMINE HYDROCHLORIDE) [Concomitant]
  13. NEPRO (CARBOHYDRATES NOS, FATS NOS, MINERALS NOS, PROTEIN, VITAMINS NOS) [Concomitant]

REACTIONS (4)
  - Feeling abnormal [None]
  - Malaise [None]
  - Dizziness [None]
  - Hypersensitivity [None]
